FAERS Safety Report 17741444 (Version 12)
Quarter: 2025Q2

REPORT INFORMATION
  Report Type: Report from Study
  Country: US (occurrence: US)
  Receive Date: 20200504
  Receipt Date: 20250625
  Transmission Date: 20250716
  Serious: Yes (Other)
  Sender: TAKEDA
  Company Number: US-SHIRE-US202015325

PATIENT
  Age: 50 Year
  Sex: Female
  Weight: 77 kg

DRUGS (26)
  1. HUMAN IMMUNOGLOBULIN G [Suspect]
     Active Substance: HUMAN IMMUNOGLOBULIN G
     Indication: Primary immunodeficiency syndrome
     Dosage: 40 GRAM, Q4WEEKS
     Dates: start: 20200418
  2. HUMAN IMMUNOGLOBULIN G [Suspect]
     Active Substance: HUMAN IMMUNOGLOBULIN G
     Indication: Immunodeficiency common variable
     Dosage: 30 GRAM, Q4WEEKS
  3. HUMAN IMMUNOGLOBULIN G [Suspect]
     Active Substance: HUMAN IMMUNOGLOBULIN G
     Dosage: 400 MILLIGRAM/KILOGRAM, Q4WEEKS
  4. ACETAMINOPHEN [Concomitant]
     Active Substance: ACETAMINOPHEN
     Indication: Product used for unknown indication
  5. DIPHENHYDRAMINE [Concomitant]
     Active Substance: DIPHENHYDRAMINE
     Indication: Product used for unknown indication
  6. SODIUM CHLORIDE [Concomitant]
     Active Substance: SODIUM CHLORIDE
     Indication: Product used for unknown indication
  7. EPINEPHRINE [Concomitant]
     Active Substance: EPINEPHRINE
     Indication: Product used for unknown indication
  8. Lmx [Concomitant]
     Indication: Product used for unknown indication
  9. CYMBALTA [Concomitant]
     Active Substance: DULOXETINE HYDROCHLORIDE
     Indication: Product used for unknown indication
  10. MONTELUKAST [Concomitant]
     Active Substance: MONTELUKAST
     Indication: Product used for unknown indication
  11. LAMICTAL [Concomitant]
     Active Substance: LAMOTRIGINE
     Indication: Product used for unknown indication
  12. VITAMIN B12 [Concomitant]
     Active Substance: CYANOCOBALAMIN
     Indication: Product used for unknown indication
  13. ESTRADIOL [Concomitant]
     Active Substance: ESTRADIOL
     Indication: Product used for unknown indication
  14. VITAMIN D3 [Concomitant]
     Active Substance: CHOLECALCIFEROL
     Indication: Product used for unknown indication
  15. ALBUTEROL SULFATE [Concomitant]
     Active Substance: ALBUTEROL SULFATE
     Indication: Product used for unknown indication
  16. MIRALAX [Concomitant]
     Active Substance: POLYETHYLENE GLYCOL 3350
     Indication: Product used for unknown indication
  17. FOLIC ACID [Concomitant]
     Active Substance: FOLIC ACID
     Indication: Product used for unknown indication
  18. IRON [Concomitant]
     Active Substance: IRON
     Indication: Product used for unknown indication
  19. HEPARIN [Concomitant]
     Active Substance: HEPARIN SODIUM
  20. DULOXETINE [Concomitant]
     Active Substance: DULOXETINE
  21. ROSUVASTATIN [Concomitant]
     Active Substance: ROSUVASTATIN
  22. ROSUVASTATIN CALCIUM [Concomitant]
     Active Substance: ROSUVASTATIN CALCIUM
  23. DULOXETINE HYDROCHLORIDE [Concomitant]
     Active Substance: DULOXETINE HYDROCHLORIDE
  24. VITAMIN D [Concomitant]
     Active Substance: VITAMIN D NOS
  25. VITAMIN B [Concomitant]
     Active Substance: VITAMIN B
  26. DIPHENHYDRAMINE HYDROCHLORIDE [Concomitant]
     Active Substance: DIPHENHYDRAMINE HYDROCHLORIDE

REACTIONS (11)
  - Pancreatitis [Unknown]
  - Illness [Unknown]
  - COVID-19 [Recovered/Resolved]
  - Product dose omission issue [Unknown]
  - Inappropriate schedule of product administration [Unknown]
  - Sinusitis [Unknown]
  - Rash pruritic [Unknown]
  - Flushing [Unknown]
  - Nausea [Unknown]
  - Insurance issue [Unknown]
  - Product use issue [Unknown]

NARRATIVE: CASE EVENT DATE: 20210717
